FAERS Safety Report 6993072-1 (Version None)
Quarter: 2010Q3

REPORT INFORMATION
  Report Type: 
  Country: None (occurrence: None)
  Receive Date: 20100917
  Receipt Date: 20100309
  Transmission Date: 20110219
  Serious: No
  Sender: FDA-Public Use
  Company Number: US-ASTRAZENECA-2010SE10295

PATIENT
  Age: 9 Year
  Sex: Male
  Weight: 106.6 kg

DRUGS (4)
  1. SEROQUEL [Suspect]
     Indication: DEVELOPMENTAL DELAY
     Route: 048
     Dates: start: 20031001, end: 20050601
  2. SEROQUEL [Suspect]
     Indication: ATTENTION DEFICIT/HYPERACTIVITY DISORDER
     Route: 048
     Dates: start: 20031001, end: 20050601
  3. SEROQUEL [Suspect]
     Indication: OBSESSIVE-COMPULSIVE DISORDER
     Route: 048
     Dates: start: 20031001, end: 20050601
  4. SEROQUEL [Suspect]
     Indication: AUTISM
     Route: 048
     Dates: start: 20031001, end: 20050601

REACTIONS (3)
  - BLOOD TRIGLYCERIDES INCREASED [None]
  - DIABETES MELLITUS [None]
  - OBESITY [None]
